FAERS Safety Report 21763963 (Version 1)
Quarter: 2022Q4

REPORT INFORMATION
  Report Type: Spontaneous
  Country: CN (occurrence: CN)
  Receive Date: 20221222
  Receipt Date: 20221222
  Transmission Date: 20230113
  Serious: Yes (Other)
  Sender: FDA-Public Use
  Company Number: None

PATIENT
  Age: 59 Year
  Sex: Female
  Weight: 55 kg

DRUGS (2)
  1. MANNITOL [Suspect]
     Active Substance: MANNITOL
     Indication: Diuretic therapy
     Dosage: 250 MILLILITERS (ML), ONCE DAILY
     Route: 041
     Dates: start: 20221128, end: 20221128
  2. PIRACETAM [Suspect]
     Active Substance: PIRACETAM
     Indication: Prophylaxis
     Dosage: 4 GRAM (G), ONCE DAILY, MANUFACTURER: GUANGDONG XINGHAO PHARMACEUTICAL CO., LTD.
     Route: 041
     Dates: start: 20221128, end: 20221128

REACTIONS (4)
  - Flushing [Recovering/Resolving]
  - Nasal congestion [Recovering/Resolving]
  - Dyspnoea [Recovering/Resolving]
  - Chest discomfort [Recovering/Resolving]

NARRATIVE: CASE EVENT DATE: 20221128
